FAERS Safety Report 22630808 (Version 1)
Quarter: 2023Q2

REPORT INFORMATION
  Report Type: Spontaneous
  Country: US (occurrence: None)
  Receive Date: 20230621
  Receipt Date: 20230621
  Transmission Date: 20230722
  Serious: Yes (Life-Threatening, Disabling, Other)
  Sender: FDA-Public Use
  Company Number: None

PATIENT
  Age: 23 Year
  Sex: Female
  Weight: 72.57 kg

DRUGS (2)
  1. KYLEENA [Suspect]
     Active Substance: LEVONORGESTREL
     Indication: Hypersensitivity
  2. KYLEENA [Suspect]
     Active Substance: LEVONORGESTREL
     Indication: Attention deficit hyperactivity disorder

REACTIONS (24)
  - Depression [None]
  - Suicidal ideation [None]
  - Disturbance in attention [None]
  - Anxiety [None]
  - Panic attack [None]
  - Dissociation [None]
  - Premenstrual dysphoric disorder [None]
  - Tremor [None]
  - Pyrexia [None]
  - Pain [None]
  - Feeling cold [None]
  - Nausea [None]
  - Fatigue [None]
  - Arthralgia [None]
  - Dermatitis allergic [None]
  - Vomiting [None]
  - Syncope [None]
  - Dysmenorrhoea [None]
  - Hypersensitivity [None]
  - Autoimmune disorder [None]
  - Impaired work ability [None]
  - Educational problem [None]
  - Economic problem [None]
  - Product complaint [None]

NARRATIVE: CASE EVENT DATE: 20230101
